FAERS Safety Report 8485443-1 (Version None)
Quarter: 2012Q3

REPORT INFORMATION
  Report Type: 
  Country: None (occurrence: None)
  Receive Date: 20120703
  Receipt Date: 20120621
  Transmission Date: 20120928
  Serious: Yes (Hospitalization)
  Sender: FDA-Public Use
  Company Number: CN-MYLANLABS-2012S1012957

PATIENT
  Age: 50 Year
  Sex: Male
  Weight: 58 kg

DRUGS (13)
  1. VANCOMYCIN [Suspect]
     Indication: LUNG ABSCESS
     Route: 065
     Dates: end: 20100714
  2. PREDNISONE [Suspect]
     Indication: DRUG ERUPTION
     Dosage: 10 MG/D; LATER RESTARTED AT 30 MG/D
     Route: 048
     Dates: start: 20100701, end: 20100808
  3. CEFOPERAZONE W/SULBACTAM [Suspect]
     Indication: LUNG ABSCESS
     Dosage: NOT CLEAR ABOUT SPECIFIC DOSAGE
     Route: 065
     Dates: end: 20100710
  4. PREDNISONE [Suspect]
     Dosage: 30 MG/D FROM 26 JUL 2010
     Route: 048
     Dates: start: 20100701, end: 20100808
  5. CALAMINE [Concomitant]
     Indication: DRUG ERUPTION
     Dosage: FOR EXTERNAL SMEARING
     Route: 061
     Dates: start: 20100714
  6. METRONIDAZOLE [Concomitant]
     Indication: LUNG ABSCESS
     Route: 065
     Dates: start: 20100716, end: 20100808
  7. PREDNISONE [Suspect]
     Indication: LUNG ABSCESS
     Dosage: 10 MG/D; LATER RESTARTED AT 30 MG/D
     Route: 048
     Dates: start: 20100701, end: 20100808
  8. MEROPENEM [Concomitant]
     Indication: LUNG ABSCESS
     Route: 065
     Dates: start: 20100701
  9. SULBACTAM [Concomitant]
  10. HYDROCORTISONE SODIUM SUCCINATE [Suspect]
     Indication: DRUG ERUPTION
     Dosage: 200 MG/D
     Route: 065
     Dates: start: 20100714, end: 20100726
  11. FOSFOMYCIN [Concomitant]
     Indication: LUNG ABSCESS
     Route: 065
     Dates: start: 20100716, end: 20100808
  12. LINEZOLID [Suspect]
     Indication: LUNG ABSCESS
     Route: 050
     Dates: end: 20100715
  13. PREDNISONE [Suspect]
     Dosage: 30 MG/D FROM 26 JUL 2010
     Route: 048
     Dates: start: 20100701, end: 20100808

REACTIONS (3)
  - FUNGAL SKIN INFECTION [None]
  - DRUG ERUPTION [None]
  - RASH [None]
